FAERS Safety Report 8131294-7 (Version None)
Quarter: 2012Q1

REPORT INFORMATION
  Report Type: 
  Country: None (occurrence: None)
  Receive Date: 20120103
  Receipt Date: 20110921
  Transmission Date: 20120608
  Serious: No
  Sender: FDA-Public Use
  Company Number: AE-2011-001712

PATIENT
  Age: 50 Year
  Sex: Female
  Weight: 87.5442 kg

DRUGS (11)
  1. ATIVAN [Concomitant]
  2. ATENOLOL [Concomitant]
  3. AMBIEN [Concomitant]
  4. LISINOPRIL [Concomitant]
  5. RIBAVIRIN [Concomitant]
  6. PEGASYS [Concomitant]
  7. PLAQUENIL [Concomitant]
  8. MICROZIDE [Concomitant]
  9. OXYCODONE HCL [Concomitant]
  10. INCIVEK [Suspect]
     Dosage: 2250 MG (750 MG,3 IN 1 D),ORAL
     Route: 048
     Dates: start: 20110907
  11. SOMA [Concomitant]

REACTIONS (1)
  - PRURITUS [None]
